FAERS Safety Report 5323105-X (Version None)
Quarter: 2007Q2

REPORT INFORMATION
  Report Type: 
  Country: None (occurrence: None)
  Receive Date: 20070507
  Receipt Date: 20070410
  Transmission Date: 20071010
  Serious: Yes (Death)
  Sender: FDA-Public Use
  Company Number: 2007SP002373

PATIENT
  Age: 8 Year
  Sex: Female
  Weight: 23 kg

DRUGS (4)
  1. TEMODAL [Suspect]
     Indication: GLIOMA
     Dosage: SEE IMAGE
     Dates: start: 20061013
  2. TEMODAL [Suspect]
     Indication: GLIOMA
     Dosage: SEE IMAGE
     Dates: start: 20061212
  3. THALIDOMIDE [Concomitant]
  4. SEPTRIN [Concomitant]

REACTIONS (8)
  - APLASTIC ANAEMIA [None]
  - BONE MARROW FAILURE [None]
  - CAECITIS [None]
  - PANCYTOPENIA [None]
  - PNEUMONIA [None]
  - PSEUDOMONAS INFECTION [None]
  - PYELONEPHRITIS [None]
  - RESPIRATORY FAILURE [None]
